FAERS Safety Report 7671500-6 (Version None)
Quarter: 2011Q3

REPORT INFORMATION
  Report Type: 
  Country: None (occurrence: None)
  Receive Date: 20110809
  Receipt Date: 20110222
  Transmission Date: 20111222
  Serious: No
  Sender: FDA-Public Use
  Company Number: US-MYLANLABS-2011S1003828

PATIENT
  Sex: Male

DRUGS (3)
  1. NYSTATIN [Concomitant]
  2. FLUCONAZOLE [Suspect]
     Indication: ACNE
     Route: 048
     Dates: start: 20110101, end: 20110201
  3. FLUCONAZOLE [Suspect]
     Route: 048
     Dates: start: 20110201, end: 20110201

REACTIONS (3)
  - PYREXIA [None]
  - NIGHTMARE [None]
  - ACNE [None]
